FAERS Safety Report 13451756 (Version 1)
Quarter: 2017Q2

REPORT INFORMATION
  Report Type: Spontaneous
  Country: US (occurrence: US)
  Receive Date: 20170418
  Receipt Date: 20170418
  Transmission Date: 20170830
  Serious: Yes (Disabling)
  Sender: FDA-Public Use
  Company Number: None

PATIENT
  Age: 63 Year
  Sex: Female
  Weight: 80.81 kg

DRUGS (12)
  1. ZOLOFT [Suspect]
     Active Substance: SERTRALINE HYDROCHLORIDE
  2. HYDRALIZINE [Concomitant]
  3. METOPROLOL. [Concomitant]
     Active Substance: METOPROLOL
  4. LORAZEPAM. [Concomitant]
     Active Substance: LORAZEPAM
  5. BABY ASPIRIN [Concomitant]
     Active Substance: ASPIRIN
  6. FISH OIL [Concomitant]
     Active Substance: FISH OIL
  7. SYMBICORT [Concomitant]
     Active Substance: BUDESONIDE\FORMOTEROL FUMARATE DIHYDRATE
  8. FLECAINIDE [Concomitant]
     Active Substance: FLECAINIDE
  9. XARELTO [Suspect]
     Active Substance: RIVAROXABAN
     Indication: ATRIAL FIBRILLATION
     Route: 048
     Dates: start: 20140815, end: 20160920
  10. OMEPRAZOLE. [Concomitant]
     Active Substance: OMEPRAZOLE
  11. VITAMIN B12 [Concomitant]
     Active Substance: CYANOCOBALAMIN
  12. IBUPROPHEN [Concomitant]
     Active Substance: IBUPROFEN

REACTIONS (24)
  - Dry mouth [None]
  - Muscle spasms [None]
  - Dysphonia [None]
  - Skin disorder [None]
  - Anaemia [None]
  - Sinusitis [None]
  - Hypoaesthesia [None]
  - Pruritus [None]
  - Lethargy [None]
  - Dyspnoea [None]
  - Dizziness [None]
  - Blister [None]
  - Pain [None]
  - Vitamin B12 decreased [None]
  - Pain in extremity [None]
  - Back pain [None]
  - Intervertebral disc protrusion [None]
  - Headache [None]
  - Nausea [None]
  - Arthralgia [None]
  - Abdominal pain upper [None]
  - Myalgia [None]
  - Contusion [None]
  - Occult blood positive [None]

NARRATIVE: CASE EVENT DATE: 20160101
